FAERS Safety Report 17710808 (Version 1)
Quarter: 2020Q2

REPORT INFORMATION
  Report Type: Spontaneous
  Country: IT (occurrence: IT)
  Receive Date: 20200427
  Receipt Date: 20200427
  Transmission Date: 20200714
  Serious: Yes (Hospitalization)
  Sender: FDA-Public Use
  Company Number: IT-ACCORD-179608

PATIENT
  Age: 71 Year
  Sex: Male
  Weight: 75 kg

DRUGS (5)
  1. OXALIPLATIN ACCORD [Suspect]
     Active Substance: OXALIPLATIN
     Indication: SMALL INTESTINE CARCINOMA
     Dosage: STRENGTH: 5 MG / ML
     Route: 042
     Dates: start: 20200326, end: 20200326
  2. TRIMETON [Concomitant]
     Active Substance: CHLORPHENIRAMINE MALEATE
     Dosage: STRENGTH: 10 MG / 1 ML
     Route: 042
     Dates: start: 20200326, end: 20200326
  3. SOLDESAM [Concomitant]
     Active Substance: DEXAMETHASONE
     Route: 042
     Dates: start: 20200326, end: 20200326
  4. ONDANSETRONE HIKMA [Concomitant]
     Active Substance: ONDANSETRON
     Dosage: STRENGTH: 8 MG / 4 ML
     Route: 042
     Dates: start: 20200326, end: 20200326
  5. METOCLOPRAMIDE S.A.L.F [Concomitant]
     Dosage: STRENGTH: 10 MG / 2 ML
     Route: 042
     Dates: start: 20200326, end: 20200326

REACTIONS (5)
  - Joint stiffness [Recovering/Resolving]
  - Dyspraxia [Recovering/Resolving]
  - Bronchospasm [Recovering/Resolving]
  - Dysarthria [Recovering/Resolving]
  - Dyspnoea [Recovering/Resolving]

NARRATIVE: CASE EVENT DATE: 20200326
